FAERS Safety Report 7036177-1 (Version None)
Quarter: 2010Q4

REPORT INFORMATION
  Report Type: 
  Country: None (occurrence: None)
  Receive Date: 20101008
  Receipt Date: 20100614
  Transmission Date: 20110411
  Serious: No
  Sender: FDA-Public Use
  Company Number: US-BRISTOL-MYERS SQUIBB COMPANY-15157431

PATIENT
  Age: 84 Year
  Sex: Female

DRUGS (5)
  1. AVAPRO [Suspect]
     Indication: HYPERTENSION
     Dosage: STARTED 2-3 YRS AGO
  2. LISINOPRIL [Suspect]
  3. LANTUS [Suspect]
  4. BETALOL [Concomitant]
  5. ASPIRIN [Concomitant]

REACTIONS (2)
  - COUGH [None]
  - PRURITUS [None]
